FAERS Safety Report 6358294-1 (Version None)
Quarter: 2009Q3

REPORT INFORMATION
  Report Type: 
  Country: None (occurrence: None)
  Receive Date: 20090916
  Receipt Date: 20090901
  Transmission Date: 20100115
  Serious: Yes (Hospitalization)
  Sender: FDA-Public Use
  Company Number: PHHY2009US39105

PATIENT
  Sex: Female

DRUGS (4)
  1. DIOVAN [Suspect]
     Indication: BLOOD PRESSURE
  2. BETASERON [Suspect]
     Indication: MULTIPLE SCLEROSIS RELAPSE
     Dosage: 8 MIU
     Route: 058
     Dates: start: 19980318
  3. ANTIBIOTICS [Concomitant]
  4. BENADRYL [Concomitant]
     Indication: PRURITUS

REACTIONS (5)
  - ESCHERICHIA INFECTION [None]
  - FUNGAL INFECTION [None]
  - GENITAL INFECTION [None]
  - RASH ERYTHEMATOUS [None]
  - STAPHYLOCOCCAL INFECTION [None]
